FAERS Safety Report 12846736 (Version 9)
Quarter: 2017Q1

REPORT INFORMATION
  Report Type: Spontaneous
  Country: US (occurrence: US)
  Receive Date: 20161014
  Receipt Date: 20170125
  Transmission Date: 20170428
  Serious: Yes (Hospitalization)
  Sender: FDA-Public Use
  Company Number: US-PFIZER INC-2016425828

PATIENT
  Age: 72 Year
  Sex: Female
  Weight: 52.16 kg

DRUGS (9)
  1. TORADOL [Concomitant]
     Active Substance: KETOROLAC TROMETHAMINE
     Dosage: 10 MG, AS NEEDED, EVERY 6 HOURS
     Dates: start: 20160823
  2. HYDROCODONE/PARACETAMOL [Concomitant]
     Active Substance: ACETAMINOPHEN\HYDROCODONE BITARTRATE
     Dosage: AS NEEDED, EVERY 4 HOURS, [HYDROCODONE 5MG], [PARACETAMOL 325 MG]
     Dates: start: 20160815
  3. SUTENT [Suspect]
     Active Substance: SUNITINIB MALATE
     Dosage: 50 MG, CYCLIC [2 WEEKS ON/1 WEEK OFF]
     Dates: start: 20161006, end: 20161128
  4. NORCO [Concomitant]
     Active Substance: ACETAMINOPHEN\HYDROCODONE BITARTRATE
     Dosage: UNK
  5. SUTENT [Suspect]
     Active Substance: SUNITINIB MALATE
     Dosage: 50 MG, CYCLIC, (2 WEEKS ON/1 WEEK OFF)
     Dates: start: 20161006
  6. SUTENT [Suspect]
     Active Substance: SUNITINIB MALATE
     Dosage: 50 MG, 1X/DAY
     Route: 048
  7. SUTENT [Suspect]
     Active Substance: SUNITINIB MALATE
     Indication: METASTATIC RENAL CELL CARCINOMA
     Dosage: 50 MG, CYCLIC (2 WEEKS ON/1 WEEK OFF)
     Route: 048
     Dates: start: 20160917, end: 20160928
  8. KETOROLAC [Concomitant]
     Active Substance: KETOROLAC\KETOROLAC TROMETHAMINE
     Dosage: UNK
  9. NIVOLUMAB [Concomitant]
     Active Substance: NIVOLUMAB
     Dosage: UNK

REACTIONS (16)
  - Blood sodium decreased [Recovering/Resolving]
  - Rash macular [Recovering/Resolving]
  - Dry mouth [Recovering/Resolving]
  - Skin lesion [Recovering/Resolving]
  - Fatigue [Recovering/Resolving]
  - Oral mucosal blistering [Unknown]
  - Ascites [Unknown]
  - Diarrhoea [Recovering/Resolving]
  - Amnesia [Recovering/Resolving]
  - Blister [Recovering/Resolving]
  - Joint swelling [Recovering/Resolving]
  - Constipation [Recovering/Resolving]
  - Blood urine [Unknown]
  - Renal haemorrhage [Not Recovered/Not Resolved]
  - Decreased appetite [Recovering/Resolving]
  - Insomnia [Unknown]

NARRATIVE: CASE EVENT DATE: 20161006
